FAERS Safety Report 10409524 (Version 1)
Quarter: 2014Q3

REPORT INFORMATION
  Report Type: Spontaneous
  Country: US (occurrence: None)
  Receive Date: 20140825
  Receipt Date: 20140825
  Transmission Date: 20150326
  Serious: Yes (Life-Threatening, Disabling)
  Sender: FDA-Public Use
  Company Number: None

PATIENT
  Age: 5 Year
  Sex: Female
  Weight: 39.46 kg

DRUGS (1)
  1. NASONEX [Suspect]
     Active Substance: MOMETASONE FUROATE
     Indication: RHINITIS
     Dosage: 1 SPRAY  ONCE DAILY EACH NOSTRIL
     Route: 045

REACTIONS (3)
  - Glucose tolerance impaired [None]
  - Fat tissue increased [None]
  - Weight increased [None]

NARRATIVE: CASE EVENT DATE: 20140822
